FAERS Safety Report 8682327 (Version 2)
Quarter: 2012Q4

REPORT INFORMATION
  Report Type: 
  Country: AR (occurrence: AR)
  Receive Date: 20120725
  Receipt Date: 20120906
  Transmission Date: 20130627
  Serious: Yes (Hospitalization)
  Sender: FDA-Public Use
  Company Number: AR-PFIZER INC-2012177349

PATIENT
  Age: 60 Year
  Sex: Female
  Weight: 56.3 kg

DRUGS (16)
  1. GENOTROPIN [Suspect]
     Dosage: 0.4 mg, 1x/day
     Route: 058
     Dates: start: 19971222
  2. ZOLOFT [Concomitant]
     Indication: GENERAL SYMPTOM
     Dosage: UNK
     Dates: start: 19980114
  3. LEVOTHYROXINE [Concomitant]
     Indication: BLOOD THYROID STIMULATING HORMONE DECREASED
     Dosage: UNK
     Dates: start: 19980201
  4. VENLAFAXINE [Concomitant]
     Indication: GENERAL SYMPTOM
     Dosage: UNK
     Dates: start: 19980714
  5. ESTROGENS CONJUGATED [Concomitant]
     Indication: BLOOD LUTEINISING HORMONE DECREASED
     Dosage: UNK
     Dates: start: 19981205
  6. ESTROGENS CONJUGATED [Concomitant]
     Indication: BLOOD FOLLICLE STIMULATING HORMONE DECREASED
  7. MEDROXYPROGESTERONE [Concomitant]
     Indication: BLOOD LUTEINISING HORMONE DECREASED
     Dosage: UNK
     Dates: start: 19991201
  8. MEDROXYPROGESTERONE [Concomitant]
     Indication: BLOOD FOLLICLE STIMULATING HORMONE DECREASED
  9. HYDROCORTISONE [Concomitant]
     Indication: BLOOD CORTICOTROPHIN DECREASED
     Dosage: UNK
     Dates: start: 20000708
  10. TIBOLONE [Concomitant]
     Indication: BLOOD LUTEINISING HORMONE DECREASED
     Dosage: UNK
     Dates: start: 20010601
  11. TIBOLONE [Concomitant]
     Indication: BLOOD FOLLICLE STIMULATING HORMONE DECREASED
  12. KLIOGEST ^NOVO INDUSTRI^ [Concomitant]
     Indication: BLOOD LUTEINISING HORMONE DECREASED
     Dosage: UNK
     Dates: start: 19941115
  13. KLIOGEST ^NOVO INDUSTRI^ [Concomitant]
     Indication: BLOOD FOLLICLE STIMULATING HORMONE DECREASED
  14. CORTISONE ACETATE [Concomitant]
     Indication: BLOOD CORTICOTROPHIN DECREASED
     Dosage: UNK
     Dates: start: 19940115
  15. MARVIL [Concomitant]
     Indication: OSTEOARTHRITIS
     Dosage: UNK
     Dates: start: 19960101
  16. CALCIO BASE D [Concomitant]
     Indication: OSTEOARTHRITIS
     Dosage: UNK
     Dates: start: 19960101

REACTIONS (1)
  - Diarrhoea [Recovered/Resolved]
